FAERS Safety Report 7314240-5 (Version None)
Quarter: 2011Q1

REPORT INFORMATION
  Report Type: 
  Country: None (occurrence: None)
  Receive Date: 20110225
  Receipt Date: 20100720
  Transmission Date: 20110831
  Serious: No
  Sender: FDA-Public Use
  Company Number: US-MYLANLABS-2010S1010839

PATIENT
  Age: 55 Year
  Sex: Male
  Weight: 86.64 kg

DRUGS (3)
  1. ACCUTANE [Suspect]
     Indication: ROSACEA
     Route: 048
     Dates: start: 20100406, end: 20100610
  2. AMNESTEEM [Suspect]
     Indication: ROSACEA
     Route: 048
     Dates: start: 20100406, end: 20100610
  3. AMNESTEEM [Suspect]
     Route: 048
     Dates: start: 20100406, end: 20100610

REACTIONS (2)
  - BLOOD TRIGLYCERIDES INCREASED [None]
  - BLOOD CHOLESTEROL INCREASED [None]
